FAERS Safety Report 5220820-3 (Version None)
Quarter: 2007Q1

REPORT INFORMATION
  Report Type: 
  Country: None (occurrence: None)
  Receive Date: 20070126
  Receipt Date: 20070116
  Transmission Date: 20070707
  Serious: Yes (Death, Hospitalization)
  Sender: FDA-Public Use
  Company Number: JP-JNJFOC-20060905064

PATIENT
  Sex: Male
  Weight: 77.4 kg

DRUGS (18)
  1. INFLIXIMAB [Suspect]
     Dosage: DOSE 3, 6, OR 10 MGK
     Route: 042
  2. INFLIXIMAB [Suspect]
     Dosage: DOSE 3, 6, OR 10 MGK
     Route: 042
  3. INFLIXIMAB [Suspect]
     Dosage: DOSE 3, 6, OR 10 MGK
     Route: 042
  4. INFLIXIMAB [Suspect]
     Dosage: DOSE 3, 6, OR 10 MGK
     Route: 042
  5. INFLIXIMAB [Suspect]
     Route: 042
  6. INFLIXIMAB [Suspect]
     Route: 042
  7. INFLIXIMAB [Suspect]
     Indication: RHEUMATOID ARTHRITIS
     Route: 042
  8. METHOTREXATE [Concomitant]
     Indication: RHEUMATOID ARTHRITIS
     Route: 048
  9. LANSOPRAZOLE [Concomitant]
     Indication: PROPHYLAXIS AGAINST GASTROINTESTINAL ULCER
     Route: 048
  10. ALOC [Concomitant]
     Indication: HYPERURICAEMIA
     Route: 048
  11. PREDNISONE [Concomitant]
     Indication: RHEUMATOID ARTHRITIS
     Route: 048
  12. ETODOLAC [Concomitant]
     Indication: RHEUMATOID ARTHRITIS
     Route: 048
  13. DIOVAN [Concomitant]
     Indication: HYPERTENSION
     Route: 048
  14. PROTECADIN [Concomitant]
     Indication: PROPHYLAXIS AGAINST GASTROINTESTINAL ULCER
     Route: 048
  15. KETOPROFEN [Concomitant]
     Indication: RHEUMATOID ARTHRITIS
     Dosage: ^ADEQUATE DOSE^
     Route: 061
  16. SANCOBA [Concomitant]
     Indication: CATARACT
     Dosage: ^ADEQUATE DOSE^
     Route: 047
  17. OFLOXACIN [Concomitant]
     Indication: CONJUNCTIVITIS
     Dosage: ^ADEQUATE DOSE^
     Route: 047
  18. XALATAN [Concomitant]
     Indication: OPEN ANGLE GLAUCOMA
     Route: 047

REACTIONS (5)
  - BILE DUCT CANCER [None]
  - BILE DUCT OBSTRUCTION [None]
  - DUODENAL ULCER [None]
  - GASTROINTESTINAL HAEMORRHAGE [None]
  - PANCREATITIS ACUTE [None]
